FAERS Safety Report 18364645 (Version 1)
Quarter: 2020Q4

REPORT INFORMATION
  Report Type: Spontaneous
  Country: RU (occurrence: RU)
  Receive Date: 20201009
  Receipt Date: 20201009
  Transmission Date: 20210114
  Serious: Yes (Other)
  Sender: FDA-Public Use
  Company Number: NVSC2020RU251089

PATIENT
  Sex: Female

DRUGS (1)
  1. RISARG [RIBOCICLIB SUCCINATE] [Suspect]
     Active Substance: RIBOCICLIB SUCCINATE
     Indication: PRODUCT USED FOR UNKNOWN INDICATION
     Dosage: 600 MG
     Route: 065

REACTIONS (2)
  - Malignant neoplasm progression [Unknown]
  - Metastases to lung [Unknown]
